FAERS Safety Report 19130782 (Version 3)
Quarter: 2021Q2

REPORT INFORMATION
  Report Type: Spontaneous
  Country: US (occurrence: US)
  Receive Date: 20210414
  Receipt Date: 20210518
  Transmission Date: 20210717
  Serious: No
  Sender: FDA-Public Use
  Company Number: US-AMGEN-USASP2021049553

PATIENT
  Age: 67 Year
  Sex: Female

DRUGS (6)
  1. ARANESP [Suspect]
     Active Substance: DARBEPOETIN ALFA
     Indication: NEPHROGENIC ANAEMIA
     Dosage: 200 MICROGRAM, Q2WK
     Route: 065
  2. ARANESP [Suspect]
     Active Substance: DARBEPOETIN ALFA
     Dosage: UNK
     Route: 065
  3. ARANESP [Suspect]
     Active Substance: DARBEPOETIN ALFA
     Dosage: UNK
     Route: 065
  4. INSULIN [Concomitant]
     Active Substance: INSULIN NOS
     Indication: TYPE 1 DIABETES MELLITUS
  5. ARANESP [Suspect]
     Active Substance: DARBEPOETIN ALFA
     Indication: APLASTIC ANAEMIA
     Dosage: 200 MICROGRAM, Q2WK
     Route: 065
  6. ARANESP [Suspect]
     Active Substance: DARBEPOETIN ALFA
     Dosage: 100 MICROGRAM, Q2WK
     Route: 065

REACTIONS (5)
  - Platelet count increased [Unknown]
  - Haemoglobin decreased [Unknown]
  - Device issue [Unknown]
  - Needle issue [Unknown]
  - Hypertension [Unknown]

NARRATIVE: CASE EVENT DATE: 20210330
